FAERS Safety Report 6275756-6 (Version None)
Quarter: 2009Q3

REPORT INFORMATION
  Report Type: 
  Country: None (occurrence: None)
  Receive Date: 20090721
  Receipt Date: 20090717
  Transmission Date: 20100115
  Serious: Yes (Death, Hospitalization)
  Sender: FDA-Public Use
  Company Number: PHEH2009US07251

PATIENT
  Sex: Male
  Weight: 63.492 kg

DRUGS (9)
  1. GLEEVEC [Suspect]
     Indication: CHRONIC MYELOID LEUKAEMIA
     Dosage: UNK, UNK
  2. GLEEVEC [Suspect]
     Dosage: 200 MG, QD
     Route: 048
     Dates: start: 20080201, end: 20090403
  3. SPRYCEL [Concomitant]
     Indication: CHRONIC MYELOID LEUKAEMIA
  4. LISINOPRIL [Concomitant]
     Indication: HYPERTENSION
     Dosage: UNK, DAILY
     Route: 048
     Dates: end: 20090403
  5. FERROUS SULFATE TAB [Concomitant]
     Indication: ANAEMIA
     Dosage: UNK, DAILY
     Route: 048
     Dates: end: 20090403
  6. FOLIC ACID [Concomitant]
     Dosage: UNK, UNK
  7. DOCUSATE SODIUM [Concomitant]
     Dosage: UNK, UNK
  8. POTASSIUM CHLORIDE [Concomitant]
     Dosage: UNK, UNK
  9. VITAMIN E [Concomitant]

REACTIONS (36)
  - ABDOMINAL PAIN UPPER [None]
  - ACTIVATED PARTIAL THROMBOPLASTIN TIME PROLONGED [None]
  - ANAEMIA [None]
  - ATRIAL FIBRILLATION [None]
  - BACK PAIN [None]
  - BILIARY TRACT DISORDER [None]
  - BLOOD ALBUMIN DECREASED [None]
  - BLOOD BILIRUBIN INCREASED [None]
  - BLOOD CREATININE INCREASED [None]
  - BLOOD GLUCOSE INCREASED [None]
  - BLOOD POTASSIUM DECREASED [None]
  - BLOOD SODIUM DECREASED [None]
  - BLOOD UREA INCREASED [None]
  - CARBON DIOXIDE DECREASED [None]
  - CARDIAC DISORDER [None]
  - CHOLECYSTECTOMY [None]
  - DYSKINESIA [None]
  - DYSPNOEA [None]
  - FATIGUE [None]
  - GASTROINTESTINAL TUBE INSERTION [None]
  - HAEMATOCRIT DECREASED [None]
  - HAEMODYNAMIC INSTABILITY [None]
  - HAEMOGLOBIN DECREASED [None]
  - HEART RATE INCREASED [None]
  - LAPAROTOMY [None]
  - MEMORY IMPAIRMENT [None]
  - MENTAL STATUS CHANGES [None]
  - NAUSEA [None]
  - NOCTURIA [None]
  - PAIN IN EXTREMITY [None]
  - PLATELET COUNT DECREASED [None]
  - PROTEIN TOTAL DECREASED [None]
  - PROTHROMBIN TIME PROLONGED [None]
  - RED BLOOD CELL COUNT DECREASED [None]
  - TROPONIN INCREASED [None]
  - WHITE BLOOD CELL COUNT INCREASED [None]
